FAERS Safety Report 6468893-4 (Version None)
Quarter: 2009Q4

REPORT INFORMATION
  Report Type: 
  Country: None (occurrence: None)
  Receive Date: 20091203
  Receipt Date: 20080118
  Transmission Date: 20100525
  Serious: Yes (Death, Other)
  Sender: FDA-Public Use
  Company Number: GB-ELI_LILLY_AND_COMPANY-GB200612000988

PATIENT
  Age: 51 Year
  Sex: Female
  Weight: 114.5 kg

DRUGS (9)
  1. YENTREVE [Suspect]
     Indication: URINARY INCONTINENCE
     Dosage: 20 MG, 2/D
     Route: 048
     Dates: start: 20061114, end: 20061115
  2. BENDROFLUAZIDE [Concomitant]
     Dosage: UNK, UNKNOWN
     Route: 065
  3. CO-CODAMOL [Concomitant]
     Dosage: UNK, UNKNOWN
     Route: 065
  4. GLICLAZIDE [Concomitant]
     Dosage: UNK, UNKNOWN
     Route: 065
  5. LISINOPRIL [Concomitant]
     Dosage: UNK, UNKNOWN
     Route: 065
  6. METFORMIN HCL [Concomitant]
     Dosage: UNK, UNKNOWN
     Route: 065
  7. ALBUTEROL [Concomitant]
     Dosage: 1 D/F, AS NEEDED
     Route: 055
  8. SIMVASTATIN [Concomitant]
     Dosage: UNK, UNKNOWN
     Route: 065
  9. WARFARIN SODIUM [Concomitant]
     Dosage: UNK, UNKNOWN
     Route: 065

REACTIONS (5)
  - ASPHYXIA [None]
  - CARDIAC FAILURE ACUTE [None]
  - CARDIAC HYPERTROPHY [None]
  - PLEURAL HAEMORRHAGE [None]
  - PULMONARY OEDEMA [None]
